FAERS Safety Report 5005410-X (Version None)
Quarter: 2006Q2

REPORT INFORMATION
  Report Type: 
  Country: None (occurrence: None)
  Receive Date: 20060518
  Receipt Date: 20060410
  Transmission Date: 20061013
  Serious: Yes (Hospitalization, Disabling)
  Sender: FDA-Public Use
  Company Number: US-MERCK-0604USA01632

PATIENT
  Age: 60 Year
  Sex: Female
  Weight: 61 kg

DRUGS (10)
  1. VIOXX [Suspect]
     Indication: OSTEOARTHRITIS
     Route: 048
     Dates: start: 20011129, end: 20020125
  2. LIPITOR [Concomitant]
     Route: 065
  3. AZMACORT [Concomitant]
     Route: 065
  4. ALBUTEROL [Concomitant]
     Route: 065
  5. VITAMIN E [Concomitant]
     Route: 065
  6. PREVACID [Concomitant]
     Route: 065
  7. ECOTRIN [Concomitant]
     Route: 065
  8. AMBIEN [Concomitant]
     Route: 065
  9. ZYRTEC [Concomitant]
     Route: 065
  10. TYLENOL (CAPLET) [Concomitant]
     Route: 065

REACTIONS (16)
  - ACUTE MYOCARDIAL INFARCTION [None]
  - ALANINE AMINOTRANSFERASE INCREASED [None]
  - ASPARTATE AMINOTRANSFERASE INCREASED [None]
  - ASTHMA [None]
  - BLOOD CREATINE PHOSPHOKINASE INCREASED [None]
  - BRONCHIAL HYPERACTIVITY [None]
  - COLON ADENOMA [None]
  - CORONARY ARTERY DISEASE [None]
  - HEPATITIS [None]
  - HOMOCYSTINAEMIA [None]
  - HYPERLIPIDAEMIA [None]
  - ISCHAEMIC CARDIOMYOPATHY [None]
  - OBESITY [None]
  - TRICUSPID VALVE INCOMPETENCE [None]
  - UPPER RESPIRATORY TRACT INFECTION [None]
  - URTICARIA [None]
